FAERS Safety Report 9544210 (Version 2)
Quarter: 2013Q4

REPORT INFORMATION
  Report Type: Spontaneous
  Country: US (occurrence: US)
  Receive Date: 20130923
  Receipt Date: 20131117
  Transmission Date: 20140711
  Serious: No
  Sender: FDA-Public Use
  Company Number: US-ASTRAZENECA-2013SE62616

PATIENT
  Age: 63 Year
  Sex: Female
  Weight: 72.1 kg

DRUGS (2)
  1. LISINOPRIL [Suspect]
     Indication: RENAL DISORDER
     Dosage: 20 MG DAILY, GENERIC
     Route: 048
     Dates: start: 20130804, end: 20130804
  2. METFORMIN [Concomitant]
     Indication: DIABETES MELLITUS

REACTIONS (6)
  - Neck pain [Unknown]
  - Throat irritation [Unknown]
  - Headache [Unknown]
  - Pyrexia [Unknown]
  - Cough [Not Recovered/Not Resolved]
  - Hypotension [Unknown]
